FAERS Safety Report 26137658 (Version 2)
Quarter: 2025Q4

REPORT INFORMATION
  Report Type: Report from Study
  Country: US (occurrence: US)
  Receive Date: 20251209
  Receipt Date: 20251214
  Transmission Date: 20260118
  Serious: No
  Sender: ABBVIE
  Company Number: US-ABBVIE-6579125

PATIENT
  Age: 58 Year
  Sex: Female
  Weight: 52.163 kg

DRUGS (3)
  1. VYALEV [Suspect]
     Active Substance: FOSCARBIDOPA\FOSLEVODOPA
     Indication: Parkinson^s disease
     Route: 058
     Dates: start: 20250514, end: 2025
  2. VYALEV [Suspect]
     Active Substance: FOSCARBIDOPA\FOSLEVODOPA
     Dosage: 24 HOUR INFUSION
     Route: 058
     Dates: start: 2025
  3. CALCIUM [Concomitant]
     Active Substance: CALCIUM
     Indication: Mineral supplementation

REACTIONS (10)
  - Poor quality product administered [Not Recovered/Not Resolved]
  - Peripheral swelling [Recovered/Resolved]
  - Eye swelling [Recovered/Resolved]
  - Vaginal haemorrhage [Not Recovered/Not Resolved]
  - Glaucoma [Not Recovered/Not Resolved]
  - Swelling face [Recovered/Resolved]
  - Rash [Recovered/Resolved]
  - Pruritus [Not Recovered/Not Resolved]
  - Product storage error [Unknown]
  - Vision blurred [Not Recovered/Not Resolved]

NARRATIVE: CASE EVENT DATE: 20250101
